FAERS Safety Report 7625602-0 (Version None)
Quarter: 2011Q3

REPORT INFORMATION
  Report Type: 
  Country: None (occurrence: None)
  Receive Date: 20110701
  Receipt Date: 20100607
  Transmission Date: 20111222
  Serious: Yes (Other)
  Sender: FDA-Public Use
  Company Number: 7007346

PATIENT
  Age: 39 Year
  Sex: Male

DRUGS (6)
  1. CYMBALTA [Concomitant]
  2. CITALOPRAM HYDROBROMIDE [Concomitant]
  3. VICOPROFEN [Concomitant]
  4. REBIF [Suspect]
     Indication: MULTIPLE SCLEROSIS
     Dosage: 44 MCG, 3 IN 1 WK, SUBCUTANEOUS
     Route: 058
     Dates: start: 20100423
  5. TRAZODONE HCL [Concomitant]
  6. GABAPENTIN [Concomitant]

REACTIONS (3)
  - DEPRESSION [None]
  - SUICIDAL IDEATION [None]
  - INSOMNIA [None]
